FAERS Safety Report 4357250-2 (Version None)
Quarter: 2004Q2

REPORT INFORMATION
  Report Type: 
  Country: None (occurrence: None)
  Receive Date: 20040512
  Receipt Date: 20040512
  Transmission Date: 20050107
  Serious: Yes (Other)
  Sender: FDA-Public Use
  Company Number: None

PATIENT
  Age: 23 Year
  Sex: Female

DRUGS (1)
  1. CLOTRIMOXAZOLE [Suspect]
     Indication: URINARY TRACT INFECTION
     Dosage: 1 TAB PO BID X 7 DAYS
     Route: 048
     Dates: start: 20040427, end: 20040428

REACTIONS (4)
  - PYREXIA [None]
  - RASH [None]
  - SWELLING FACE [None]
  - SWOLLEN TONGUE [None]
